FAERS Safety Report 8071904-6 (Version None)
Quarter: 2012Q1

REPORT INFORMATION
  Report Type: 
  Country: None (occurrence: None)
  Receive Date: 20120119
  Receipt Date: 20120110
  Transmission Date: 20120608
  Serious: Yes (Other)
  Sender: FDA-Public Use
  Company Number: AUR-APL-2011-06326

PATIENT
  Age: 70 Year
  Sex: Female
  Weight: 77.5 kg

DRUGS (2)
  1. CANDESARTAN CILEXETIL [Concomitant]
  2. AMLODIPINE [Suspect]
     Indication: ESSENTIAL HYPERTENSION
     Dosage: (10 MG), ORAL
     Route: 048
     Dates: start: 20051221, end: 20111111

REACTIONS (3)
  - CELLULITIS [None]
  - ULCER [None]
  - FIBRIN D DIMER INCREASED [None]
